FAERS Safety Report 5988425-4 (Version None)
Quarter: 2008Q4

REPORT INFORMATION
  Report Type: 
  Country: None (occurrence: None)
  Receive Date: 20081204
  Receipt Date: 20081118
  Transmission Date: 20090506
  Serious: Yes (Hospitalization)
  Sender: FDA-Public Use
  Company Number: JPI-P-004223

PATIENT
  Age: 70 Year
  Sex: Male

DRUGS (8)
  1. XYREM [Suspect]
     Indication: CATAPLEXY
     Dosage: SEE IMAGE
     Route: 048
     Dates: start: 20080101, end: 20080101
  2. XYREM [Suspect]
     Indication: NARCOLEPSY
     Dosage: SEE IMAGE
     Route: 048
     Dates: start: 20080101, end: 20080101
  3. XYREM [Suspect]
     Indication: CATAPLEXY
     Dosage: SEE IMAGE
     Route: 048
     Dates: start: 20080404, end: 20080101
  4. XYREM [Suspect]
     Indication: NARCOLEPSY
     Dosage: SEE IMAGE
     Route: 048
     Dates: start: 20080404, end: 20080101
  5. XYREM [Suspect]
     Indication: CATAPLEXY
     Dosage: SEE IMAGE
     Route: 048
     Dates: start: 20080101, end: 20081101
  6. XYREM [Suspect]
     Indication: NARCOLEPSY
     Dosage: SEE IMAGE
     Route: 048
     Dates: start: 20080101, end: 20081101
  7. ANTICOAGULANTS [Suspect]
     Indication: DRUG USE FOR UNKNOWN INDICATION
  8. METHYLPHENIDATE HCL [Concomitant]

REACTIONS (10)
  - CEREBROVASCULAR ACCIDENT [None]
  - DYSPEPSIA [None]
  - FALL [None]
  - FEELING COLD [None]
  - FEELING HOT [None]
  - HAEMATOMA [None]
  - HYPOAESTHESIA [None]
  - NERVOUSNESS [None]
  - OVERDOSE [None]
  - PRURITUS [None]
